FAERS Safety Report 4762989-0 (Version None)
Quarter: 2005Q3

REPORT INFORMATION
  Report Type: 
  Country: None (occurrence: None)
  Receive Date: 20050907
  Receipt Date: 20030826
  Transmission Date: 20060218
  Serious: Yes (Hospitalization)
  Sender: FDA-Public Use
  Company Number: US-MERCK-0308USA02598

PATIENT
  Age: 51 Year
  Sex: Male
  Weight: 86 kg

DRUGS (6)
  1. VIOXX [Suspect]
     Indication: PERIARTHRITIS
     Route: 048
     Dates: start: 20010808, end: 20010920
  2. VIOXX [Suspect]
     Indication: SPINAL COLUMN STENOSIS
     Route: 048
     Dates: start: 20010808, end: 20010920
  3. MOBIC [Concomitant]
     Route: 065
  4. SKELAXIN [Concomitant]
     Route: 065
  5. PERCOCET [Concomitant]
     Indication: PERIARTHRITIS
     Route: 065
  6. ZANTAC [Concomitant]
     Route: 065

REACTIONS (10)
  - ANGINA UNSTABLE [None]
  - CORONARY ARTERY DISEASE [None]
  - ECCHYMOSIS [None]
  - EMOTIONAL DISTRESS [None]
  - FALL [None]
  - GROIN PAIN [None]
  - MYOCARDIAL INFARCTION [None]
  - PAIN IN EXTREMITY [None]
  - SHOULDER PAIN [None]
  - URTICARIA [None]
